FAERS Safety Report 8336721-8 (Version None)
Quarter: 2012Q2

REPORT INFORMATION
  Report Type: 
  Country: None (occurrence: None)
  Receive Date: 20120504
  Receipt Date: 20120423
  Transmission Date: 20120825
  Serious: Yes (Hospitalization)
  Sender: FDA-Public Use
  Company Number: CA-JNJFOC-20120410307

PATIENT
  Sex: Female
  Weight: 104.33 kg

DRUGS (4)
  1. PERCOCET [Concomitant]
     Route: 065
  2. REMICADE [Suspect]
     Route: 042
  3. REMICADE [Suspect]
     Indication: PSORIASIS
     Route: 042
     Dates: start: 20110601
  4. REMICADE [Suspect]
     Route: 042
     Dates: start: 20110701

REACTIONS (1)
  - GASTRIC BYPASS [None]
